FAERS Safety Report 9608548 (Version 1)
Quarter: 2013Q4

REPORT INFORMATION
  Report Type: Report from Study
  Country: GB (occurrence: GB)
  Receive Date: 20131009
  Receipt Date: 20131009
  Transmission Date: 20140711
  Serious: Yes (Other)
  Sender: FDA-Public Use
  Company Number: GB-SA-2013SA096829

PATIENT
  Sex: 0

DRUGS (5)
  1. ALEMTUZUMAB [Suspect]
     Indication: IMMUNOSUPPRESSION
     Route: 042
  2. TACROLIMUS [Suspect]
     Indication: IMMUNOSUPPRESSION
     Dosage: DOSE: TO ACHIEVE TROUGH LEVELS OF 9 TO 14 NG/ML IN MONTHS 0 TO 3 AND OF 4 TO 9NG/ML THEREAFTER
     Route: 048
  3. METHYLPREDNISOLONE [Concomitant]
     Indication: IMMUNOSUPPRESSION
     Route: 042
  4. CO-TRIMOXAZOLE [Concomitant]
  5. ANTIFUNGALS [Concomitant]
     Route: 048

REACTIONS (2)
  - Graft loss [Unknown]
  - Treatment noncompliance [Unknown]
